FAERS Safety Report 6608221-4 (Version None)
Quarter: 2010Q1

REPORT INFORMATION
  Report Type: 
  Country: None (occurrence: None)
  Receive Date: 20100212
  Receipt Date: 20100105
  Transmission Date: 20100710
  Serious: No
  Sender: FDA-Public Use
  Company Number: 1000011112

PATIENT
  Age: 44 Year
  Sex: Female

DRUGS (13)
  1. SAVELLA [Suspect]
     Indication: FIBROMYALGIA
     Dosage: 12.5 MG (12.5 MG, 1 IN 1 D), ORAL; 25 (12.5 MG, 2 IN 1 D), ORAL
     Route: 048
     Dates: start: 20100104, end: 20100104
  2. SAVELLA [Suspect]
     Indication: FIBROMYALGIA
     Dosage: 12.5 MG (12.5 MG, 1 IN 1 D), ORAL; 25 (12.5 MG, 2 IN 1 D), ORAL
     Route: 048
     Dates: start: 20100105
  3. LUNESTA [Suspect]
     Indication: INSOMNIA
     Dosage: 3 MG (3 MG, 1 IN 1 D), ORAL
     Route: 048
     Dates: start: 20100104
  4. LYRICA [Concomitant]
  5. PERCOCET [Concomitant]
  6. METHOCARBAMOL [Concomitant]
  7. TIZANIDINE HCL [Concomitant]
  8. XANAX [Concomitant]
  9. LASIX [Concomitant]
  10. LOPERAMIDE [Concomitant]
  11. LISINOPRIL [Concomitant]
  12. AMITRIPTYLINE HCL [Concomitant]
  13. HYOMAX [Concomitant]

REACTIONS (2)
  - HEADACHE [None]
  - VOMITING [None]
